FAERS Safety Report 10915707 (Version 1)
Quarter: 2015Q1

REPORT INFORMATION
  Report Type: Report from Study
  Country: US (occurrence: US)
  Receive Date: 20150316
  Receipt Date: 20150316
  Transmission Date: 20150721
  Serious: Yes (Other)
  Sender: FDA-Public Use
  Company Number: US-ROCHE-1550885

PATIENT
  Sex: Male
  Weight: 96.8 kg

DRUGS (26)
  1. RITUXAN [Suspect]
     Active Substance: RITUXIMAB
     Indication: DEMYELINATION
     Route: 042
  2. FOSAPREPITANT [Concomitant]
     Active Substance: FOSAPREPITANT
     Route: 042
  3. FASLODEX [Concomitant]
     Active Substance: FULVESTRANT
     Route: 030
  4. RIBASPHERE [Concomitant]
     Active Substance: RIBAVIRIN
     Route: 048
  5. XGEVA [Concomitant]
     Active Substance: DENOSUMAB
     Route: 058
  6. ALOXI [Concomitant]
     Active Substance: PALONOSETRON HYDROCHLORIDE
     Route: 042
  7. LIDOCAINE. [Concomitant]
     Active Substance: LIDOCAINE
     Route: 058
  8. B12 COMPLEX [Concomitant]
     Route: 030
  9. BENADRYL [Concomitant]
     Active Substance: DIPHENHYDRAMINE HYDROCHLORIDE
     Route: 065
  10. CHLORTHALIDONE. [Concomitant]
     Active Substance: CHLORTHALIDONE
     Route: 048
  11. PEG-INTERFERON ALFA 2A [Suspect]
     Active Substance: PEGINTERFERON ALFA-2A
     Indication: HEPATITIS C
     Route: 058
  12. NEULASTA [Concomitant]
     Active Substance: PEGFILGRASTIM
     Indication: NEUTROPENIA
     Route: 058
  13. TRELSTAR [Concomitant]
     Active Substance: TRIPTORELIN PAMOATE
     Route: 030
  14. RANITIDINE [Concomitant]
     Active Substance: RANITIDINE\RANITIDINE HYDROCHLORIDE
     Route: 048
  15. RIBASPHERE RIBAPAK [Concomitant]
     Active Substance: RIBAVIRIN
     Route: 048
  16. RITUXAN [Suspect]
     Active Substance: RITUXIMAB
     Indication: NEUROMYELITIS OPTICA
     Route: 042
     Dates: start: 200705
  17. NORMAL SALINE [Concomitant]
     Active Substance: SODIUM CHLORIDE
     Route: 042
  18. ATIVAN [Concomitant]
     Active Substance: LORAZEPAM
     Route: 042
  19. KYTRIL [Concomitant]
     Active Substance: GRANISETRON HYDROCHLORIDE
     Route: 042
  20. FISH OIL [Concomitant]
     Active Substance: FISH OIL
     Route: 048
  21. OXYCONTIN [Concomitant]
     Active Substance: OXYCODONE HYDROCHLORIDE
     Route: 048
  22. VITAMIN C [Concomitant]
     Active Substance: ASCORBIC ACID
     Route: 048
  23. PEPCID [Concomitant]
     Active Substance: FAMOTIDINE
     Route: 042
  24. TYLENOL [Concomitant]
     Active Substance: ACETAMINOPHEN
     Route: 065
  25. CHANTIX [Concomitant]
     Active Substance: VARENICLINE TARTRATE
  26. FERRLECIT (UNITED STATES) [Concomitant]
     Route: 042

REACTIONS (7)
  - Formication [Unknown]
  - Off label use [Unknown]
  - Pancytopenia [Unknown]
  - Muscular weakness [Unknown]
  - Tremor [Unknown]
  - Anxiety [Unknown]
  - Hepatitis C [Unknown]
